FAERS Safety Report 6599641-5 (Version None)
Quarter: 2010Q1

REPORT INFORMATION
  Report Type: 
  Country: None (occurrence: None)
  Receive Date: 20100224
  Receipt Date: 20100219
  Transmission Date: 20100710
  Serious: Yes (Hospitalization)
  Sender: FDA-Public Use
  Company Number: FR-ROCHE-686539

PATIENT
  Age: 56 Year
  Sex: Female

DRUGS (7)
  1. RIVOTRIL [Suspect]
     Indication: DRUG USE FOR UNKNOWN INDICATION
     Route: 048
     Dates: end: 20100104
  2. RIVOTRIL [Suspect]
     Dosage: DOSE DECREASED
     Route: 048
     Dates: start: 20100106
  3. SEROPRAM [Suspect]
     Indication: MAJOR DEPRESSION
     Dosage: THERAPY STARTED IN BEGINNING OF DECEMBER 2009
     Route: 048
     Dates: start: 20091205, end: 20091210
  4. SEROPRAM [Suspect]
     Route: 048
     Dates: start: 20091211, end: 20091218
  5. SEROPRAM [Suspect]
     Route: 048
     Dates: start: 20091219, end: 20100104
  6. LOXAPAC [Concomitant]
  7. FORLAX [Concomitant]

REACTIONS (2)
  - DISTURBANCE IN ATTENTION [None]
  - HYPONATRAEMIA [None]
